FAERS Safety Report 16820379 (Version 1)
Quarter: 2019Q3

REPORT INFORMATION
  Report Type: Spontaneous
  Country: GB (occurrence: GB)
  Receive Date: 20190918
  Receipt Date: 20190918
  Transmission Date: 20191005
  Serious: Yes (Disabling, Other)
  Sender: FDA-Public Use
  Company Number: GB-ADVANZ PHARMA-E2B_00019034

PATIENT

DRUGS (6)
  1. NATURE-THROID [Concomitant]
     Active Substance: THYROID, PORCINE
  2. BISOPROLOL FUMARATE. [Concomitant]
     Active Substance: BISOPROLOL FUMARATE
  3. VITAMIN B12 [Concomitant]
     Active Substance: CYANOCOBALAMIN
  4. TIMODINE [Concomitant]
     Indication: FUNGAL INFECTION
     Dosage: 3 DOSAGE FORM, FREQ: UNK X 1 DAYS
     Route: 061
     Dates: start: 20190103
  5. PREDNISOLONE. [Suspect]
     Active Substance: PREDNISOLONE
  6. MAGNESIUM GLYCINATE [Concomitant]
     Active Substance: MAGNESIUM GLYCINATE

REACTIONS (3)
  - Haematemesis [Unknown]
  - Blood pressure increased [Unknown]
  - Atrial fibrillation [Unknown]
